FAERS Safety Report 9857173 (Version 3)
Quarter: 2014Q1

REPORT INFORMATION
  Report Type: Spontaneous
  Country: GB (occurrence: GB)
  Receive Date: 20140130
  Receipt Date: 20140327
  Transmission Date: 20141002
  Serious: Yes (Life-Threatening, Hospitalization, Other)
  Sender: FDA-Public Use
  Company Number: GB-WATSON-2013-22713

PATIENT
  Age: 17 Year
  Sex: Male
  Weight: 55 kg

DRUGS (3)
  1. CO-TRIMOXAZOLE [Suspect]
     Indication: EPIDIDYMITIS
     Dosage: 960 MG, BID
     Route: 048
     Dates: start: 20131029, end: 20131110
  2. CIPROFLOXACIN [Concomitant]
     Indication: EPIDIDYMITIS
     Dosage: UNK
     Route: 065
  3. DOXYCYCLINE [Concomitant]
     Indication: PRODUCT USED FOR UNKNOWN INDICATION
     Dosage: UNK
     Route: 065

REACTIONS (13)
  - Sepsis [Recovered/Resolved]
  - Pancytopenia [Recovered/Resolved]
  - Oropharyngeal pain [Unknown]
  - Malaise [Unknown]
  - Decreased appetite [Unknown]
  - Arthralgia [Unknown]
  - Rash [Unknown]
  - Influenza like illness [Unknown]
  - Pallor [Unknown]
  - Myalgia [Unknown]
  - Chills [Unknown]
  - Liver function test abnormal [Recovering/Resolving]
  - Pyrexia [Unknown]
